FAERS Safety Report 8346917-7 (Version None)
Quarter: 2012Q2

REPORT INFORMATION
  Report Type: 
  Country: None (occurrence: None)
  Receive Date: 20120509
  Receipt Date: 20120504
  Transmission Date: 20120825
  Serious: Yes (Hospitalization)
  Sender: FDA-Public Use
  Company Number: PHHY2012FR038633

PATIENT
  Sex: Female

DRUGS (2)
  1. VANCOMYCIN HCL [Suspect]
     Dosage: 2 G, QD
     Route: 042
     Dates: start: 20120323, end: 20120418
  2. RIFADIN [Suspect]
     Dosage: 300 MG, QD
     Route: 048
     Dates: start: 20120323

REACTIONS (6)
  - ERYTHEMA [None]
  - RALES [None]
  - HYPERTHERMIA [None]
  - ANGIOEDEMA [None]
  - URTICARIA [None]
  - SCRATCH [None]
